FAERS Safety Report 11557262 (Version 1)
Quarter: 2015Q3

REPORT INFORMATION
  Report Type: Spontaneous
  Country: US (occurrence: US)
  Receive Date: 20150916
  Receipt Date: 20150916
  Transmission Date: 20151125
  Serious: No
  Sender: FDA-Public Use
  Company Number: US-ELI_LILLY_AND_COMPANY-US200807001463

PATIENT
  Sex: Female

DRUGS (10)
  1. PROGRAF [Concomitant]
     Active Substance: TACROLIMUS\TACROLIMUS ANHYDROUS
  2. FORTEO [Suspect]
     Active Substance: TERIPARATIDE
     Dates: start: 200803
  3. PREDNISONE. [Concomitant]
     Active Substance: PREDNISONE
  4. INOLIN [Concomitant]
  5. VITAMIN D [Concomitant]
     Active Substance: CHOLECALCIFEROL
  6. IRON [Concomitant]
     Active Substance: IRON
  7. CALCIUM CARBONATE. [Concomitant]
     Active Substance: CALCIUM CARBONATE
  8. NOVOLOG [Concomitant]
     Active Substance: INSULIN ASPART
  9. LANTUS [Concomitant]
     Active Substance: INSULIN GLARGINE
  10. ACECOL [Concomitant]
     Active Substance: TEMOCAPRIL HYDROCHLORIDE

REACTIONS (5)
  - Influenza [Recovered/Resolved]
  - Muscle spasms [Not Recovered/Not Resolved]
  - Vein disorder [Not Recovered/Not Resolved]
  - Limb discomfort [Not Recovered/Not Resolved]
  - Musculoskeletal stiffness [Not Recovered/Not Resolved]
